FAERS Safety Report 8114857-4 (Version None)
Quarter: 2012Q1

REPORT INFORMATION
  Report Type: 
  Country: None (occurrence: None)
  Receive Date: 20120206
  Receipt Date: 20120126
  Transmission Date: 20120608
  Serious: Yes (Other)
  Sender: FDA-Public Use
  Company Number: US-US-EMD SERONO, INC.-7109801

PATIENT
  Sex: Female

DRUGS (1)
  1. REBIF [Suspect]
     Indication: MULTIPLE SCLEROSIS
     Route: 058
     Dates: start: 20100629

REACTIONS (13)
  - DYSPHAGIA [None]
  - UTERINE LEIOMYOMA [None]
  - FALL [None]
  - VOMITING [None]
  - TENDON INJURY [None]
  - LIGAMENT SPRAIN [None]
  - UTERINE CYST [None]
  - CYST [None]
  - CONTUSION [None]
  - BREAST SWELLING [None]
  - NEPHROLITHIASIS [None]
  - RENAL CYST [None]
  - THYROID NEOPLASM [None]
